FAERS Safety Report 23142314 (Version 3)
Quarter: 2023Q4

REPORT INFORMATION
  Report Type: Report from Study
  Country: US (occurrence: US)
  Receive Date: 20231103
  Receipt Date: 20231220
  Transmission Date: 20240110
  Serious: Yes (Other)
  Sender: FDA-Public Use
  Company Number: US-JNJFOC-20231068370

PATIENT
  Age: 6 Decade
  Sex: Male

DRUGS (1)
  1. SPRAVATO [Suspect]
     Active Substance: ESKETAMINE
     Indication: Depression
     Dosage: ^84 MG, 137 TOTAL DOSES^
     Dates: start: 20200730, end: 20230714

REACTIONS (5)
  - Suicidal ideation [Not Recovered/Not Resolved]
  - Drug abuse [Unknown]
  - Depression [Not Recovered/Not Resolved]
  - Cognitive disorder [Unknown]
  - Memory impairment [Unknown]

NARRATIVE: CASE EVENT DATE: 20230101
